FAERS Safety Report 7461156-X (Version None)
Quarter: 2011Q2

REPORT INFORMATION
  Report Type: 
  Country: None (occurrence: None)
  Receive Date: 20110505
  Receipt Date: 20101021
  Transmission Date: 20111010
  Serious: No
  Sender: FDA-Public Use
  Company Number: US-AMGEN-USASP2010001270

PATIENT
  Sex: Female

DRUGS (2)
  1. METHOTREXATE [Concomitant]
  2. ENBREL [Suspect]
     Indication: RHEUMATOID ARTHRITIS
     Dosage: 50 MG, QWK
     Dates: start: 20040301

REACTIONS (10)
  - FALL [None]
  - CONTUSION [None]
  - ARTHRITIS [None]
  - DIZZINESS [None]
  - INJECTION SITE ERYTHEMA [None]
  - DRUG INEFFECTIVE [None]
  - INJURY [None]
  - LACERATION [None]
  - NAUSEA [None]
  - INJECTION SITE PAIN [None]
